FAERS Safety Report 5609754-X (Version None)
Quarter: 2008Q1

REPORT INFORMATION
  Report Type: 
  Country: None (occurrence: None)
  Receive Date: 20080131
  Receipt Date: 20071211
  Transmission Date: 20080703
  Serious: No
  Sender: FDA-Public Use
  Company Number: US-BAYER-200714145BCC

PATIENT
  Age: 44 Year
  Sex: Male
  Weight: 73 kg

DRUGS (6)
  1. ALEVE [Suspect]
     Indication: BACK PAIN
     Dosage: UNIT DOSE: 220 MG
     Route: 048
     Dates: start: 20071203, end: 20071209
  2. WELLBUTRIN [Concomitant]
  3. KLONOPIN [Concomitant]
  4. TRAZODONE HCL [Concomitant]
  5. ATENOLOL [Concomitant]
  6. NAPROXEN [Concomitant]

REACTIONS (1)
  - BACK PAIN [None]
